FAERS Safety Report 7607194-5 (Version None)
Quarter: 2011Q3

REPORT INFORMATION
  Report Type: 
  Country: None (occurrence: None)
  Receive Date: 20110713
  Receipt Date: 20110713
  Transmission Date: 20111222
  Serious: Yes (Hospitalization, Other)
  Sender: FDA-Public Use
  Company Number: DE-ABBOTT-11P-062-0727813-00

PATIENT
  Sex: Male

DRUGS (9)
  1. FERROSANOL [Concomitant]
     Indication: PRODUCT USED FOR UNKNOWN INDICATION
  2. METRONIDAZOLE [Concomitant]
     Indication: PRODUCT USED FOR UNKNOWN INDICATION
     Route: 048
  3. NOVALGIN [Concomitant]
     Indication: PRODUCT USED FOR UNKNOWN INDICATION
     Dosage: FOUR TIMES
  4. PREDNISOLONE [Concomitant]
     Indication: PRODUCT USED FOR UNKNOWN INDICATION
  5. PANTOPRAZOLE [Concomitant]
     Indication: PRODUCT USED FOR UNKNOWN INDICATION
  6. VITAMIN B-12 [Concomitant]
     Indication: PRODUCT USED FOR UNKNOWN INDICATION
     Route: 058
  7. QUANTALAN [Concomitant]
     Indication: PRODUCT USED FOR UNKNOWN INDICATION
  8. HUMIRA [Suspect]
     Indication: CROHN'S DISEASE
     Route: 058
     Dates: start: 20060506, end: 20110301
  9. HUMIRA [Suspect]
     Route: 058
     Dates: start: 20110501

REACTIONS (10)
  - GASTROINTESTINAL STENOSIS [None]
  - INTESTINAL FISTULA [None]
  - ABSCESS INTESTINAL [None]
  - HAEMOGLOBIN DECREASED [None]
  - RETROPERITONEAL ABSCESS [None]
  - GENERAL PHYSICAL HEALTH DETERIORATION [None]
  - ADHESIOLYSIS [None]
  - LYMPHADENITIS [None]
  - INTESTINAL STENOSIS [None]
  - CONDITION AGGRAVATED [None]
